FAERS Safety Report 4456245-8 (Version None)
Quarter: 2004Q3

REPORT INFORMATION
  Report Type: 
  Country: None (occurrence: None)
  Receive Date: 20040920
  Receipt Date: 20040915
  Transmission Date: 20050211
  Serious: Yes (Life-Threatening, Hospitalization)
  Sender: FDA-Public Use
  Company Number: 2004SE05134

PATIENT
  Age: 84 Year

DRUGS (1)
  1. BLOPRESS [Suspect]
     Indication: HYPERTENSION
     Dosage: 6 MG DAILY PO
     Route: 048

REACTIONS (6)
  - BLOOD PRESSURE INCREASED [None]
  - CEREBRAL INFARCTION [None]
  - HYPOAESTHESIA [None]
  - MOBILITY DECREASED [None]
  - MOVEMENT DISORDER [None]
  - SENSORY DISTURBANCE [None]
